FAERS Safety Report 16883782 (Version 2)
Quarter: 2019Q4

REPORT INFORMATION
  Report Type: Report from Study
  Country: US (occurrence: US)
  Receive Date: 20191004
  Receipt Date: 20191018
  Transmission Date: 20200122
  Serious: Yes (Hospitalization)
  Sender: FDA-Public Use
  Company Number: US-ROCHE-2422087

PATIENT
  Age: 68 Year
  Sex: Female
  Weight: 62 kg

DRUGS (9)
  1. FISH OIL [Concomitant]
     Active Substance: FISH OIL
     Route: 048
     Dates: start: 2017
  2. MAGNESIUM [Concomitant]
     Active Substance: MAGNESIUM
     Route: 048
     Dates: start: 2017
  3. VITAMIN D3 [Concomitant]
     Active Substance: CHOLECALCIFEROL
     Dosage: 1000 U
     Route: 048
     Dates: start: 2017
  4. RANIBIZUMAB. [Suspect]
     Active Substance: RANIBIZUMAB
     Indication: NEOVASCULAR AGE-RELATED MACULAR DEGENERATION
     Dosage: MOST RECENT DOSE OF STUDY EYE RANIBIZUMAB 10 MG/ML PRIOR TO SAE ONSET: 22/MAY/2019.
     Route: 050
  5. RANIBIZUMAB. [Concomitant]
     Active Substance: RANIBIZUMAB
     Dosage: DOSE OF LAST SPONSOR SUPPLIED FELLOW EYE RANIBIZUMAB FOR INTRAVITREAL INJECTION ADMINISTERED PRIOR T
     Route: 050
  6. FLUTICASONE PROPIONATE. [Concomitant]
     Active Substance: FLUTICASONE PROPIONATE
     Indication: SEASONAL ALLERGY
     Route: 050
     Dates: start: 1990
  7. OTHER OPHTHALMOLOGICALS [Concomitant]
     Active Substance: UNSPECIFIED INGREDIENT
     Indication: PROPHYLAXIS
     Route: 047
     Dates: start: 2016
  8. ASPIRIN [ACETYLSALICYLIC ACID] [Concomitant]
     Active Substance: ASPIRIN
     Route: 048
     Dates: start: 2016
  9. DULOXETINE DR [Concomitant]
     Active Substance: DULOXETINE
     Indication: ANXIETY
     Route: 048
     Dates: start: 20190202

REACTIONS (1)
  - Small intestinal obstruction [Recovered/Resolved]

NARRATIVE: CASE EVENT DATE: 20190604
